FAERS Safety Report 13983682 (Version 2)
Quarter: 2020Q4

REPORT INFORMATION
  Report Type: Spontaneous
  Country: US (occurrence: US)
  Receive Date: 20170918
  Receipt Date: 20201023
  Transmission Date: 20210113
  Serious: No
  Sender: FDA-Public Use
  Company Number: US-SUNOVION-2017SUN004036

PATIENT
  Sex: Female

DRUGS (6)
  1. LUNESTA [Suspect]
     Active Substance: ESZOPICLONE
     Dosage: 3 MG
     Route: 048
  2. LUNESTA [Suspect]
     Active Substance: ESZOPICLONE
     Dosage: UNK
     Route: 048
  3. LUNESTA [Suspect]
     Active Substance: ESZOPICLONE
     Indication: FIBROMYALGIA
     Dosage: 3 MG
     Route: 048
     Dates: start: 20200927
  4. LUNESTA [Suspect]
     Active Substance: ESZOPICLONE
     Dosage: 2MG OR 3MG
     Route: 048
  5. MELATONIN;THEANINE [Concomitant]
     Indication: INSOMNIA
     Dosage: 3MG/200MG, HS
  6. LUNESTA [Suspect]
     Active Substance: ESZOPICLONE
     Indication: INSOMNIA
     Dosage: 2 MG
     Route: 048

REACTIONS (6)
  - Feeling abnormal [Unknown]
  - Drug ineffective [Unknown]
  - Constipation [Not Recovered/Not Resolved]
  - Pain [Unknown]
  - Terminal insomnia [Not Recovered/Not Resolved]
  - Abnormal dreams [Not Recovered/Not Resolved]
